FAERS Safety Report 8568335-9 (Version None)
Quarter: 2012Q3

REPORT INFORMATION
  Report Type: 
  Country: None (occurrence: None)
  Receive Date: 20120803
  Receipt Date: 20120510
  Transmission Date: 20120928
  Serious: No
  Sender: FDA-Public Use
  Company Number: US-ABBOTT-12P-163-0934547-00

PATIENT
  Sex: Male
  Weight: 77.18 kg

DRUGS (6)
  1. DIOVAN [Concomitant]
     Indication: PRODUCT USED FOR UNKNOWN INDICATION
  2. ASPIRIN [Concomitant]
     Indication: PRODUCT USED FOR UNKNOWN INDICATION
     Dosage: IN THE DAYTIME
  3. NIASPAN [Suspect]
     Indication: STENT PLACEMENT
  4. NIASPAN [Suspect]
     Indication: CARDIAC FAILURE
     Dosage: 500MG AT BEDTIME
     Dates: start: 20111001
  5. NIASPAN [Suspect]
     Indication: ARTERIAL OCCLUSIVE DISEASE
  6. SIMVASTATIN [Concomitant]
     Indication: PRODUCT USED FOR UNKNOWN INDICATION

REACTIONS (1)
  - FLUSHING [None]
